FAERS Safety Report 10034345 (Version 1)
Quarter: 2014Q1

REPORT INFORMATION
  Report Type: Spontaneous
  Country: US (occurrence: None)
  Receive Date: 20140324
  Receipt Date: 20140324
  Transmission Date: 20141002
  Serious: Yes (Other)
  Sender: FDA-Public Use
  Company Number: None

PATIENT
  Age: 56 Year
  Sex: Female

DRUGS (1)
  1. VOLTAREN [Suspect]
     Indication: PLANTAR FASCIITIS
     Dosage: LITTLE SQUEEZE, FOUR TIMES DAILY, APPLIED TO A SURFACE, USUALLY THE SKIN

REACTIONS (4)
  - Muscle spasms [None]
  - Pyrexia [None]
  - Pain in extremity [None]
  - Paraesthesia [None]
